FAERS Safety Report 8245253-7 (Version None)
Quarter: 2012Q1

REPORT INFORMATION
  Report Type: 
  Country: None (occurrence: None)
  Receive Date: 20120329
  Receipt Date: 20120316
  Transmission Date: 20120608
  Serious: No
  Sender: FDA-Public Use
  Company Number: US-B.I. PHARMACEUTICALS,INC./RIDGEFIELD-2011-BP-28876BP

PATIENT
  Sex: Male
  Weight: 72.12 kg

DRUGS (7)
  1. ATENOLOL [Concomitant]
     Indication: ATRIAL FIBRILLATION
     Dosage: 50 MG
     Route: 048
     Dates: start: 20111031
  2. ATENOLOL [Concomitant]
     Indication: SUPRAVENTRICULAR TACHYCARDIA
  3. DILTIAZEM HCL [Concomitant]
     Indication: ATRIAL FIBRILLATION
     Dosage: 90 MG
     Route: 048
  4. DILTIAZEM HCL [Concomitant]
     Indication: SUPRAVENTRICULAR TACHYCARDIA
  5. PRADAXA [Suspect]
     Indication: ATRIAL FIBRILLATION
     Dosage: 300 MG
     Route: 048
     Dates: start: 20111017
  6. PAXIL [Concomitant]
     Indication: ANXIETY
     Dosage: 20 MG
     Route: 048
  7. LIPITOR [Concomitant]
     Indication: BLOOD CHOLESTEROL INCREASED
     Dosage: 10 MG
     Route: 048

REACTIONS (2)
  - SLUGGISHNESS [None]
  - DYSPEPSIA [None]
